FAERS Safety Report 9031283 (Version 2)
Quarter: 2013Q2

REPORT INFORMATION
  Report Type: Report from Study
  Country: US (occurrence: US)
  Receive Date: 20130124
  Receipt Date: 20130613
  Transmission Date: 20140414
  Serious: Yes (Life-Threatening, Hospitalization, Other)
  Sender: FDA-Public Use
  Company Number: US-009507513-1207USA011678

PATIENT
  Age: 38 Year
  Sex: Female

DRUGS (4)
  1. BLINDED CORIFOLLITROPIN ALFA [Suspect]
     Indication: OVULATION INDUCTION
     Dosage: UNK, ONCE
     Route: 058
     Dates: start: 20101231, end: 20101231
  2. BLINDED POST TRIAL THERAPY [Suspect]
     Indication: OVULATION INDUCTION
     Dosage: UNK, ONCE
     Route: 058
     Dates: start: 20101231, end: 20101231
  3. BLINDED PRE TRIAL THERAPY [Suspect]
     Indication: OVULATION INDUCTION
     Dosage: UNK, ONCE
     Route: 058
     Dates: start: 20101231, end: 20101231
  4. BLINDED THERAPY [Suspect]
     Indication: OVULATION INDUCTION
     Dosage: UNK
     Route: 058
     Dates: start: 20101231, end: 20110106

REACTIONS (11)
  - Anaphylactoid syndrome of pregnancy [Recovering/Resolving]
  - Disseminated intravascular coagulation [Recovering/Resolving]
  - Postpartum haemorrhage [Recovering/Resolving]
  - Dyspnoea [Recovering/Resolving]
  - Acute respiratory distress syndrome [Recovering/Resolving]
  - Bradycardia foetal [Recovered/Resolved]
  - Oxygen saturation decreased [Recovering/Resolving]
  - Slow response to stimuli [Recovering/Resolving]
  - Hypotension [Recovering/Resolving]
  - Circulatory collapse [Recovering/Resolving]
  - Renal failure [Recovering/Resolving]
